FAERS Safety Report 4799135-3 (Version None)
Quarter: 2005Q4

REPORT INFORMATION
  Report Type: 
  Country: None (occurrence: None)
  Receive Date: 20051014
  Receipt Date: 20051005
  Transmission Date: 20060501
  Serious: Yes (Hospitalization)
  Sender: FDA-Public Use
  Company Number: PH-MERCK-0510AUS00082

PATIENT
  Age: 78 Year
  Sex: Male

DRUGS (3)
  1. VIOXX [Suspect]
     Indication: ARTHRALGIA
     Route: 048
     Dates: start: 20030501, end: 20040405
  2. VIOXX [Suspect]
     Route: 048
     Dates: start: 20030501, end: 20040405
  3. AMLODIPINE BESYLATE [Concomitant]
     Indication: HYPERTENSION
     Route: 065

REACTIONS (1)
  - CEREBELLAR INFARCTION [None]
